FAERS Safety Report 10190191 (Version 2)
Quarter: 2016Q1

REPORT INFORMATION
  Report Type: Spontaneous
  Country: US (occurrence: US)
  Receive Date: 20140522
  Receipt Date: 20160210
  Transmission Date: 20160525
  Serious: Yes (Hospitalization, Disabling, Other)
  Sender: FDA-Public Use
  Company Number: US-009507513-1405USA011474

PATIENT
  Sex: Male

DRUGS (11)
  1. CORTICOSTEROIDS (UNSPECIFIED) [Concomitant]
     Active Substance: UNSPECIFIED INGREDIENT
     Dosage: UNK
     Route: 065
     Dates: start: 1960, end: 2014
  2. AZITHROMYCIN ANHYDROUS. [Concomitant]
     Active Substance: AZITHROMYCIN ANHYDROUS
     Indication: BRONCHIECTASIS
     Dosage: UNK
     Route: 065
     Dates: start: 1995
  3. ONE-A-DAY MENS VITAMIN [Concomitant]
     Dosage: UNK
     Route: 048
     Dates: start: 1995
  4. FOSAMAX PLUS D [Suspect]
     Active Substance: ALENDRONATE SODIUM\CHOLECALCIFEROL
     Indication: OSTEOPOROSIS
     Dosage: 70 MG, QW
     Route: 048
     Dates: start: 200804, end: 2012
  5. ALENDRONATE SODIUM. [Suspect]
     Active Substance: ALENDRONATE SODIUM
     Indication: OSTEOPOROSIS
     Dosage: 70 MG, QW
     Route: 048
     Dates: start: 2012, end: 2014
  6. ALBUTEROL. [Concomitant]
     Active Substance: ALBUTEROL
     Indication: BRONCHIECTASIS
     Dosage: UNK
     Route: 065
     Dates: start: 1995
  7. COMBIVENT [Concomitant]
     Active Substance: ALBUTEROL SULFATE\IPRATROPIUM BROMIDE
     Indication: BRONCHIECTASIS
     Dosage: UNK
     Route: 055
     Dates: start: 1995
  8. FLOVENT [Concomitant]
     Active Substance: FLUTICASONE PROPIONATE
     Indication: BRONCHIECTASIS
     Dosage: UNK
     Route: 055
     Dates: start: 1995
  9. ACCOLATE [Concomitant]
     Active Substance: ZAFIRLUKAST
     Indication: BRONCHIECTASIS
     Dosage: UNK
     Route: 065
     Dates: start: 1995
  10. FOSAMAX [Suspect]
     Active Substance: ALENDRONATE SODIUM
     Indication: OSTEOPOROSIS
     Dosage: 70 MG, QW
     Route: 048
     Dates: start: 199910, end: 200804
  11. PREDNISONE. [Concomitant]
     Active Substance: PREDNISONE
     Indication: BRONCHIECTASIS
     Dosage: UNK
     Route: 065
     Dates: start: 1960

REACTIONS (15)
  - Femur fracture [Not Recovered/Not Resolved]
  - Road traffic accident [Unknown]
  - Wrist fracture [Unknown]
  - Aspergillus infection [Unknown]
  - Stress fracture [Not Recovered/Not Resolved]
  - Spinal fracture [Unknown]
  - Pseudomonas infection [Unknown]
  - Femur fracture [Not Recovered/Not Resolved]
  - Fall [Unknown]
  - Tooth extraction [Unknown]
  - Skin cancer [Not Recovered/Not Resolved]
  - Osteoporosis [Not Recovered/Not Resolved]
  - Angiopathy [Unknown]
  - Fracture [Unknown]
  - Hip fracture [Unknown]

NARRATIVE: CASE EVENT DATE: 2000
